FAERS Safety Report 14175219 (Version 1)
Quarter: 2017Q4

REPORT INFORMATION
  Report Type: Not Available
  Country: US (occurrence: US)
  Receive Date: 20171109
  Receipt Date: 20171109
  Transmission Date: 20180321
  Serious: Yes (Hospitalization)
  Sender: FDA-Public Use
  Company Number: US-WELLSPRINGPHARMA-2017-US-013232

PATIENT
  Age: 2 Year
  Sex: Male
  Weight: 11.79 kg

DRUGS (1)
  1. BONINE [Suspect]
     Active Substance: MECLIZINE HYDROCHLORIDE
     Dosage: 3 TABLETS ONCE
     Route: 048
     Dates: start: 20171106

REACTIONS (4)
  - Somnolence [Recovered/Resolved]
  - Accidental exposure to product by child [None]
  - Oxygen saturation decreased [Recovered/Resolved]
  - Accidental exposure to product [Unknown]

NARRATIVE: CASE EVENT DATE: 20171106
